FAERS Safety Report 8582548-1 (Version None)
Quarter: 2012Q3

REPORT INFORMATION
  Report Type: 
  Country: None (occurrence: None)
  Receive Date: 20120809
  Receipt Date: 20120112
  Transmission Date: 20120928
  Serious: Yes (Hospitalization, Other)
  Sender: FDA-Public Use
  Company Number: US-ROCHE-1095015

PATIENT
  Sex: Female

DRUGS (7)
  1. ACCOLATE [Concomitant]
     Route: 048
  2. KEPPRA [Concomitant]
  3. PREDNISONE TAB [Concomitant]
  4. PROCAIN [Concomitant]
  5. XOLAIR [Suspect]
     Indication: PRODUCT USED FOR UNKNOWN INDICATION
  6. PREDNISONE TAB [Concomitant]
  7. BUSPAR [Concomitant]

REACTIONS (9)
  - ASTHMA [None]
  - COUGH [None]
  - OROPHARYNGEAL PAIN [None]
  - RHINORRHOEA [None]
  - DYSPNOEA EXERTIONAL [None]
  - WHEEZING [None]
  - WEIGHT INCREASED [None]
  - CHEST PAIN [None]
  - SPUTUM DISCOLOURED [None]
